FAERS Safety Report 26020206 (Version 1)
Quarter: 2025Q4

REPORT INFORMATION
  Report Type: Spontaneous
  Country: US (occurrence: US)
  Receive Date: 20251110
  Receipt Date: 20251110
  Transmission Date: 20260118
  Serious: No
  Sender: TENSHI KAIZEN PRIVATE LIMITED
  Company Number: US-TENSHI KAIZEN PRIVATE LIMITED-2024TK000120

PATIENT
  Age: 4 Month
  Sex: Male

DRUGS (3)
  1. LORATADINE [Suspect]
     Active Substance: LORATADINE
     Indication: Urticaria pigmentosa
     Dosage: UNK
     Route: 065
  2. DIPHENHYDRAMINE [Suspect]
     Active Substance: DIPHENHYDRAMINE
     Indication: Urticaria pigmentosa
     Dosage: UNK
     Route: 065
  3. SALINE [Suspect]
     Active Substance: SODIUM CHLORIDE
     Indication: Urticaria pigmentosa
     Dosage: SALINE WASHES
     Route: 065

REACTIONS (2)
  - Condition aggravated [Unknown]
  - Off label use [Unknown]
